FAERS Safety Report 5054382-0 (Version None)
Quarter: 2006Q3

REPORT INFORMATION
  Report Type: 
  Country: None (occurrence: None)
  Receive Date: 20060713
  Receipt Date: 20060630
  Transmission Date: 20061208
  Serious: Yes (Hospitalization)
  Sender: FDA-Public Use
  Company Number: 226973

PATIENT
  Age: 60 Year
  Sex: Female

DRUGS (2)
  1. RITUXAN [Suspect]
     Indication: WALDENSTROM'S MACROGLOBULINAEMIA
     Dosage: 1/WEEK
  2. STEROIDS NOS (STEROID NOS) [Concomitant]

REACTIONS (13)
  - ANAPHYLACTIC REACTION [None]
  - BACK PAIN [None]
  - BONE PAIN [None]
  - BRONCHIAL DISORDER [None]
  - CHEST DISCOMFORT [None]
  - CHILLS [None]
  - INFUSION RELATED REACTION [None]
  - MYALGIA [None]
  - NASAL DISORDER [None]
  - PAIN IN EXTREMITY [None]
  - PALPITATIONS [None]
  - PYREXIA [None]
  - URTICARIA [None]
